FAERS Safety Report 9163555 (Version 2)
Quarter: 2013Q2

REPORT INFORMATION
  Report Type: Spontaneous
  Country: GB (occurrence: GB)
  Receive Date: 20130314
  Receipt Date: 20130501
  Transmission Date: 20140414
  Serious: Yes (Other)
  Sender: FDA-Public Use
  Company Number: GB-B.I. PHARMACEUTICALS,INC./RIDGEFIELD-2013-UK-00379UK

PATIENT
  Age: 84 Year
  Sex: Female

DRUGS (12)
  1. PRADAXA [Suspect]
     Dosage: 110 MG
     Route: 048
     Dates: start: 20130219
  2. DIGOXIN [Concomitant]
     Dosage: 62.5 MG
  3. OXAZEPAM [Concomitant]
     Dosage: AS DIRECTED
  4. ATORVASTATIN [Concomitant]
     Dosage: 10 MG
  5. MIANSERIN HYDROCHLORIDE [Concomitant]
     Dosage: 20 MG
  6. ZANIDIP [Concomitant]
     Dosage: 20 MG
     Route: 048
  7. CALCICHEW D3 FORTE [Concomitant]
     Dosage: 1 ANZ
  8. STRONTIUM RANELATE SUGAR FRE GRANULES [Concomitant]
     Dosage: 2 GRAMS/SACHET TAKEN ONCE DAILY
  9. ASPIRIN E/C TABLETS [Concomitant]
     Dosage: 75 MG
  10. DOUBLEBASE GEL (PUMP DISPENSER) [Concomitant]
     Dosage: 500GRAM QUANTITY TWICE DAILY
  11. COZAAR [Concomitant]
     Dosage: 100 MG
  12. BISOPROLOL FUMARATE [Concomitant]
     Dosage: 10 MG

REACTIONS (4)
  - Renal pain [Unknown]
  - Back pain [Unknown]
  - Dyspepsia [Unknown]
  - Diarrhoea [Unknown]
